FAERS Safety Report 19720760 (Version 1)
Quarter: 2021Q3

REPORT INFORMATION
  Report Type: Spontaneous
  Country: RU (occurrence: RU)
  Receive Date: 20210818
  Receipt Date: 20210818
  Transmission Date: 20211014
  Serious: Yes (Hospitalization)
  Sender: FDA-Public Use
  Company Number: None

PATIENT
  Sex: Female

DRUGS (25)
  1. AMLODIPINE [Concomitant]
     Active Substance: AMLODIPINE BESYLATE
  2. PEPCID [Concomitant]
     Active Substance: FAMOTIDINE
  3. ASPIRIN EC [Concomitant]
     Active Substance: ASPIRIN
  4. CYMBLTA [Concomitant]
  5. OMGEGA?3 KRILL [Concomitant]
  6. COENZYME Q10 [Concomitant]
     Active Substance: DIETARY SUPPLEMENT\UBIDECARENONE
  7. IMDUR [Concomitant]
     Active Substance: ISOSORBIDE MONONITRATE
  8. PATANOL [Concomitant]
     Active Substance: OLOPATADINE HYDROCHLORIDE
  9. RANEXA [Concomitant]
     Active Substance: RANOLAZINE
  10. REPATHA [Suspect]
     Active Substance: EVOLOCUMAB
     Indication: TYPE V HYPERLIPIDAEMIA
     Dosage: ?          OTHER DOSE:1 PEN;?
     Route: 058
     Dates: start: 20201030
  11. LASIX [Concomitant]
     Active Substance: FUROSEMIDE
  12. TRULICITY [Concomitant]
     Active Substance: DULAGLUTIDE
  13. BONIVA [Concomitant]
     Active Substance: IBANDRONATE SODIUM
  14. VITAMIN D3 [Concomitant]
     Active Substance: CHOLECALCIFEROL
  15. LINZESS [Concomitant]
     Active Substance: LINACLOTIDE
  16. BASAGLAR [Concomitant]
     Active Substance: INSULIN GLARGINE
  17. HYDROXYCHLOR [Concomitant]
     Active Substance: HYDROXYCHLOROQUINE
  18. MOMETASONE SPR [Concomitant]
  19. TESSALON PER [Concomitant]
  20. ZETIA [Concomitant]
     Active Substance: EZETIMIBE
  21. CANDESARTAN. [Concomitant]
     Active Substance: CANDESARTAN
  22. LEVOCETIRIZI [Concomitant]
  23. NITOSTAT SUB [Concomitant]
  24. TOBRAMYCIN OP [Concomitant]
  25. TOPROL XL [Concomitant]
     Active Substance: METOPROLOL SUCCINATE

REACTIONS (2)
  - Therapy interrupted [None]
  - Fall [None]
